FAERS Safety Report 5549549-9 (Version None)
Quarter: 2007Q4

REPORT INFORMATION
  Report Type: 
  Country: None (occurrence: None)
  Receive Date: 20071212
  Receipt Date: 20071205
  Transmission Date: 20080405
  Serious: Yes (Other)
  Sender: FDA-Public Use
  Company Number: PHEH2006US01240

PATIENT
  Age: 49 Year
  Sex: Female
  Weight: 79.818 kg

DRUGS (5)
  1. AREDIA [Suspect]
     Indication: METASTASES TO BONE
     Dosage: UNK,UNK
  2. ZOMETA [Suspect]
     Indication: METASTASES TO BONE
     Dosage: 4 MG MONTHLY
     Route: 042
     Dates: start: 19980101
  3. XELODA [Concomitant]
     Indication: BREAST CANCER
  4. TAMOXIFEN CITRATE [Concomitant]
     Dosage: 20 MG, QD
  5. ARIMIDEX [Concomitant]

REACTIONS (31)
  - BLADDER CATHETERISATION [None]
  - BLOOD THYROID STIMULATING HORMONE INCREASED [None]
  - BONE DEBRIDEMENT [None]
  - BREAST CANCER RECURRENT [None]
  - BREAST CANCER STAGE IV [None]
  - CARDIAC FAILURE CONGESTIVE [None]
  - CYST [None]
  - CYSTOSCOPY [None]
  - DEEP VEIN THROMBOSIS [None]
  - DISEASE PROGRESSION [None]
  - DYSPNOEA [None]
  - HYDRONEPHROSIS [None]
  - HYPOAESTHESIA ORAL [None]
  - HYPOTHYROIDISM [None]
  - INFECTION [None]
  - LOOSE TOOTH [None]
  - METASTASES TO BONE MARROW [None]
  - METASTATIC NEOPLASM [None]
  - MUCOSAL EROSION [None]
  - ORAL INTAKE REDUCED [None]
  - OSTEONECROSIS [None]
  - PAIN [None]
  - PROSTHESIS IMPLANTATION [None]
  - PYELOGRAM RETROGRADE [None]
  - RENAL ATROPHY [None]
  - RENAL FAILURE [None]
  - SINUS DISORDER [None]
  - SINUS POLYP [None]
  - URETHRAL OBSTRUCTION [None]
  - URETHRAL STENT INSERTION [None]
  - WEIGHT DECREASED [None]
